FAERS Safety Report 10289890 (Version 1)
Quarter: 2014Q3

REPORT INFORMATION
  Report Type: Spontaneous
  Country: BR (occurrence: None)
  Receive Date: 20140703
  Receipt Date: 20140703
  Transmission Date: 20150326
  Serious: Yes (Other)
  Sender: FDA-Public Use
  Company Number: AUR-APL-2014-06125

PATIENT
  Age: 54 Year
  Sex: Female

DRUGS (6)
  1. OMEPRAZOLE. [Suspect]
     Active Substance: OMEPRAZOLE
     Indication: GASTRITIS
     Route: 048
     Dates: start: 201403
  2. LOSARTAN (LOSARTAN) [Concomitant]
     Active Substance: LOSARTAN
  3. ATENOLOL. [Suspect]
     Active Substance: ATENOLOL
     Indication: HYPERTENSION
     Route: 048
  4. VIMOVO [Suspect]
     Active Substance: ESOMEPRAZOLE MAGNESIUM\NAPROXEN
     Indication: HERNIA REPAIR
     Route: 048
     Dates: start: 2013, end: 2013
  5. HYDROCHLOROTHIAZIDE. [Suspect]
     Active Substance: HYDROCHLOROTHIAZIDE
     Indication: HYPERTENSION
     Route: 048
  6. RITMONORM (PROPAFENONE HYDROCHLORIDE) [Concomitant]

REACTIONS (5)
  - Bone cyst [None]
  - Palpitations [None]
  - Confusional state [None]
  - Heart rate increased [None]
  - Insomnia [None]

NARRATIVE: CASE EVENT DATE: 2013
